FAERS Safety Report 5302190-5 (Version None)
Quarter: 2007Q2

REPORT INFORMATION
  Report Type: 
  Country: None (occurrence: None)
  Receive Date: 20070419
  Receipt Date: 20070417
  Transmission Date: 20071010
  Serious: Yes (Life-Threatening, Hospitalization, Disabling, Other)
  Sender: FDA-Public Use
  Company Number: US-MERCK-0703USA03151

PATIENT
  Age: 81 Year
  Sex: Female
  Weight: 98 kg

DRUGS (11)
  1. JANUVIA [Suspect]
     Indication: DIABETES MELLITUS
     Route: 048
     Dates: start: 20070223, end: 20070313
  2. ACTOS [Concomitant]
     Indication: DIABETES MELLITUS
     Route: 048
  3. ALLOPURINOL [Concomitant]
     Indication: GOUT
     Route: 048
  4. ISOSORBIDE [Concomitant]
     Indication: CORONARY ARTERY DISEASE
     Route: 048
  5. GABAPENTIN [Concomitant]
     Indication: NEUROPATHY
     Route: 048
  6. LANTUS [Concomitant]
     Indication: DIABETES MELLITUS
     Route: 058
  7. LEXAPRO [Concomitant]
     Indication: DEPRESSION
     Route: 048
  8. ADVAIR DISKUS 100/50 [Concomitant]
     Indication: ASTHMA
  9. HUMALOG [Concomitant]
     Indication: DIABETES MELLITUS
     Route: 058
  10. PROTONIX [Concomitant]
     Indication: GASTROOESOPHAGEAL REFLUX DISEASE
     Route: 065
  11. SKELAXIN [Concomitant]
     Indication: MUSCLE SPASMS
     Route: 048

REACTIONS (5)
  - ANAEMIA [None]
  - HYPOCALCAEMIA [None]
  - PNEUMONIA [None]
  - VITAMIN D DEFICIENCY [None]
  - WRONG TECHNIQUE IN DRUG USAGE PROCESS [None]
